FAERS Safety Report 22709301 (Version 2)
Quarter: 2024Q2

REPORT INFORMATION
  Report Type: Spontaneous
  Country: US (occurrence: US)
  Receive Date: 20230717
  Receipt Date: 20240508
  Transmission Date: 20240716
  Serious: No
  Sender: FDA-Public Use
  Company Number: US-TAKEDA-2023TUS069206

PATIENT
  Sex: Male
  Weight: 105 kg

DRUGS (2)
  1. LIVTENCITY [Suspect]
     Active Substance: MARIBAVIR
     Indication: Cytomegalovirus infection
     Dosage: 2 DOSAGE FORM, BID
     Route: 048
  2. LIVTENCITY [Suspect]
     Active Substance: MARIBAVIR
     Dosage: 400 MILLIGRAM, BID
     Route: 065
     Dates: start: 20230713

REACTIONS (5)
  - Upper limb fracture [Unknown]
  - Headache [Unknown]
  - Fatigue [Unknown]
  - Dysgeusia [Unknown]
  - Product dispensing issue [Unknown]
